FAERS Safety Report 8937128 (Version 1)
Quarter: 2012Q4

REPORT INFORMATION
  Report Type: Spontaneous
  Country: GB (occurrence: None)
  Receive Date: 20121121
  Receipt Date: 20121121
  Transmission Date: 20130627
  Serious: Yes (Other)
  Sender: FDA-Public Use
  Company Number: 2012-19128

PATIENT
  Age: 70 Year
  Sex: Male

DRUGS (5)
  1. PRAMIPEXOLE DIHYDROCHLORIDE [Suspect]
     Route: 048
     Dates: start: 20110726, end: 20120728
  2. STALEVO [Concomitant]
  3. VESICARE [Concomitant]
  4. CO-CODAMOL [Concomitant]
  5. AMANTADINE (AMANTADINE) [Concomitant]

REACTIONS (1)
  - Parkinson^s disease [None]
